FAERS Safety Report 9595416 (Version 1)
Quarter: 2013Q4

REPORT INFORMATION
  Report Type: Spontaneous
  Country: US (occurrence: US)
  Receive Date: 20131004
  Receipt Date: 20131004
  Transmission Date: 20140711
  Serious: Yes (Other)
  Sender: FDA-Public Use
  Company Number: US-NAPPMUNDI-USA-2012-0093329

PATIENT
  Sex: Male

DRUGS (1)
  1. BUTRANS [Suspect]
     Indication: DRUG ABUSE
     Dosage: UNKNOWN
     Route: 062

REACTIONS (2)
  - Drug abuse [Unknown]
  - Loss of consciousness [Unknown]
